FAERS Safety Report 14003055 (Version 1)
Quarter: 2017Q3

REPORT INFORMATION
  Report Type: Spontaneous
  Country: FR (occurrence: FR)
  Receive Date: 20170922
  Receipt Date: 20170922
  Transmission Date: 20171128
  Serious: Yes (Hospitalization)
  Sender: FDA-Public Use
  Company Number: FR-MERCK KGAA-2027434

PATIENT
  Age: 78 Year
  Sex: Female

DRUGS (1)
  1. NOVOTHYROX [Suspect]
     Active Substance: LEVOTHYROXINE SODIUM
     Indication: PRODUCT USED FOR UNKNOWN INDICATION
     Dates: start: 20170801

REACTIONS (6)
  - Insomnia [Unknown]
  - Vertigo [Unknown]
  - Head injury [Unknown]
  - Fatigue [Unknown]
  - Alopecia [Unknown]
  - Fall [Unknown]

NARRATIVE: CASE EVENT DATE: 20170812
